FAERS Safety Report 26059915 (Version 4)
Quarter: 2025Q4

REPORT INFORMATION
  Report Type: Spontaneous
  Country: EU (occurrence: EU)
  Receive Date: 20251118
  Receipt Date: 20251224
  Transmission Date: 20260117
  Serious: Yes (Death)
  Sender: VERTEX
  Company Number: EU-VERTEX PHARMACEUTICALS-2025-019241

PATIENT
  Sex: Male

DRUGS (13)
  1. ELEXACAFTOR\IVACAFTOR\TEZACAFTOR [Suspect]
     Active Substance: ELEXACAFTOR\IVACAFTOR\TEZACAFTOR
     Indication: Cystic fibrosis
     Dosage: 75MG IVACAFTOR/50MG TEZACAFTOR/ 100MG ELEXACAFTOR, ONE TABLET ONCE DAILY IN MORNING
     Route: 061
     Dates: start: 202201, end: 2025
  2. KALYDECO [Suspect]
     Active Substance: IVACAFTOR
     Indication: Cystic fibrosis
     Dosage: ONE TABLET ONCE DAILY IN EVENING
     Route: 061
     Dates: end: 2025
  3. DARBEPOETIN ALFA [Concomitant]
     Active Substance: DARBEPOETIN ALFA
  4. ESOMEPRAZOLE [Concomitant]
     Active Substance: ESOMEPRAZOLE
  5. CREON [Concomitant]
     Active Substance: PANCRELIPASE AMYLASE\PANCRELIPASE LIPASE\PANCRELIPASE PROTEASE
  6. ALFACALCIDOL [Concomitant]
     Active Substance: ALFACALCIDOL
  7. CHLORTHALIDONE [Concomitant]
     Active Substance: CHLORTHALIDONE
  8. IRBESARTAN [Concomitant]
     Active Substance: IRBESARTAN
  9. BARNIDIPINE [Concomitant]
     Active Substance: BARNIDIPINE
  10. MINOCYCLINE [Concomitant]
     Active Substance: MINOCYCLINE HYDROCHLORIDE
  11. INSULIN LISPRO [Concomitant]
     Active Substance: INSULIN LISPRO
  12. FERROUS FUMARATE [Concomitant]
     Active Substance: FERROUS FUMARATE
  13. SODIUM BICARBONATE [Concomitant]
     Active Substance: SODIUM BICARBONATE

REACTIONS (2)
  - Pancreatic carcinoma [Fatal]
  - Increased viscosity of bronchial secretion [Unknown]

NARRATIVE: CASE EVENT DATE: 20251023
